FAERS Safety Report 24240544 (Version 1)
Quarter: 2024Q3

REPORT INFORMATION
  Report Type: Spontaneous
  Country: CO (occurrence: CO)
  Receive Date: 20240822
  Receipt Date: 20240822
  Transmission Date: 20241017
  Serious: Yes (Death)
  Sender: BOEHRINGER INGELHEIM
  Company Number: CO-BoehringerIngelheim-2024-BI-047333

PATIENT
  Sex: Male
  Weight: 45 kg

DRUGS (1)
  1. NINTEDANIB [Suspect]
     Active Substance: NINTEDANIB
     Indication: Pulmonary fibrosis
     Dates: start: 202205, end: 20240820

REACTIONS (2)
  - Choking [Fatal]
  - Pneumonia [Fatal]

NARRATIVE: CASE EVENT DATE: 20240731
